FAERS Safety Report 7921085-1 (Version None)
Quarter: 2011Q4

REPORT INFORMATION
  Report Type: 
  Country: None (occurrence: None)
  Receive Date: 20111117
  Receipt Date: 20111114
  Transmission Date: 20120403
  Serious: Yes (Hospitalization, Disabling)
  Sender: FDA-Public Use
  Company Number: US-MERCK-1012USA03789

PATIENT
  Age: 49 Year
  Sex: Female

DRUGS (2)
  1. FOSAMAX [Suspect]
     Indication: OSTEOPENIA
     Route: 048
     Dates: start: 20060401, end: 20100301
  2. FOSAMAX PLUS D [Suspect]
     Indication: OSTEOPENIA
     Route: 048
     Dates: start: 20060401, end: 20100301

REACTIONS (17)
  - JAW DISORDER [None]
  - HYPERTENSION [None]
  - GINGIVAL DISORDER [None]
  - TOOTH LOSS [None]
  - ADVERSE EVENT [None]
  - BREAST CANCER [None]
  - OVARIAN CYST [None]
  - NECROSIS [None]
  - LYMPHOEDEMA [None]
  - RENAL DISORDER [None]
  - PAIN [None]
  - TYPE 2 DIABETES MELLITUS [None]
  - HAEMORRHAGE [None]
  - TOOTH DISORDER [None]
  - BONE LOSS [None]
  - BLOOD CHOLESTEROL INCREASED [None]
  - OSTEONECROSIS OF JAW [None]
